FAERS Safety Report 5066353-9 (Version None)
Quarter: 2006Q3

REPORT INFORMATION
  Report Type: 
  Country: None (occurrence: None)
  Receive Date: 20060719
  Receipt Date: 20060404
  Transmission Date: 20061208
  Serious: No
  Sender: FDA-Public Use
  Company Number: 06P-163-0329840-00

PATIENT
  Age: 37 Year
  Sex: Male
  Weight: 119 kg

DRUGS (20)
  1. NORVIR [Suspect]
     Indication: HIV INFECTION
     Dosage: 100 MG, 2 IN 1 D, ORAL
     Route: 048
     Dates: start: 20050315
  2. SCH 417690 TABLETS [Suspect]
     Indication: HIV INFECTION
     Dosage: 15 MG, 1 IN 1 D, ORAL
     Route: 048
     Dates: start: 20050908
  3. SAQUINAVIR [Concomitant]
  4. EMTRICITABINE [Concomitant]
  5. LEXIVA [Concomitant]
  6. BUDESONIDE [Concomitant]
  7. MONTELUKAST SODIUM [Concomitant]
  8. VITAPLEX [Concomitant]
  9. LANSOPRAZOLE [Concomitant]
  10. TESTOSTERONE [Concomitant]
  11. BACLOFEN [Concomitant]
  12. CELECOXIB [Concomitant]
  13. LUNESTA [Concomitant]
  14. OXYCODONE HCL [Concomitant]
  15. TAMSULOSIN HYDROCHLORIDE [Concomitant]
  16. DYAZIDE [Concomitant]
  17. DULOXETINE HYDROCHLORIDE [Concomitant]
  18. CYMBALTA [Concomitant]
  19. GABAPENTIN [Concomitant]
  20. MORPHINE SULFATE [Concomitant]

REACTIONS (1)
  - BLOOD TRIGLYCERIDES INCREASED [None]
